FAERS Safety Report 17150618 (Version 1)
Quarter: 2019Q4

REPORT INFORMATION
  Report Type: Spontaneous
  Country: US (occurrence: US)
  Receive Date: 20191212
  Receipt Date: 20191212
  Transmission Date: 20200122
  Serious: Yes (Other)
  Sender: FDA-Public Use
  Company Number: None

PATIENT
  Age: 45 Year
  Sex: Male
  Weight: 83.01 kg

DRUGS (9)
  1. LEVOTHYROXINE (LEVOTHYROXINE) (LEVOTHYROXINE) , TC1091 (100 MCG) [Concomitant]
     Active Substance: LEVOTHYROXINE
  2. LISINOPRIL 10 MG [Concomitant]
     Active Substance: LISINOPRIL
  3. GLIMIPIRIDE 4 MG [Concomitant]
  4. ATORVASTATIN 20 MG [Concomitant]
     Active Substance: ATORVASTATIN
  5. FISH OIL [Concomitant]
     Active Substance: FISH OIL
  6. METFORMIN [Suspect]
     Active Substance: METFORMIN HYDROCHLORIDE
     Indication: TYPE 2 DIABETES MELLITUS
     Route: 048
     Dates: start: 20090824
  7. GARLIC. [Concomitant]
     Active Substance: GARLIC
  8. GEMFIBROZIL 600 MG [Concomitant]
     Active Substance: GEMFIBROZIL
  9. VITAMIN D [Concomitant]
     Active Substance: VITAMIN D NOS

REACTIONS (2)
  - Prostate cancer [None]
  - Product contamination [None]

NARRATIVE: CASE EVENT DATE: 20190814
